FAERS Safety Report 11325760 (Version 1)
Quarter: 2015Q3

REPORT INFORMATION
  Report Type: Report from Study
  Country: US (occurrence: US)
  Receive Date: 20150731
  Receipt Date: 20150731
  Transmission Date: 20151125
  Serious: Yes (Hospitalization, Other)
  Sender: FDA-Public Use
  Company Number: US-ROCHE-1613349

PATIENT
  Age: 32 Year
  Sex: Male

DRUGS (4)
  1. TRC105 [Suspect]
     Active Substance: INVESTIGATIONAL PRODUCT
     Dosage: CYCLE 1: 5 MG/KG OVER 1-4 HOURS ON DAY 11
     Route: 042
  2. TRC105 [Suspect]
     Active Substance: INVESTIGATIONAL PRODUCT
     Dosage: CYCLE 2 : 8 M/KG IV OVER 1-4 HOURS ON DAY 1 AND DAY 8
     Route: 042
  3. BEVACIZUMAB [Suspect]
     Active Substance: BEVACIZUMAB
     Indication: GLIOBLASTOMA
     Dosage: CYCLE 1 AND 2 : 14 DAYS , 10 MG/KG IV ON DAY 1
     Route: 042
     Dates: start: 20141104
  4. TRC105 [Suspect]
     Active Substance: INVESTIGATIONAL PRODUCT
     Indication: GLIOBLASTOMA
     Dosage: CYCLE 1: 3 MG/KG IV OVER 1-4 HOURS ON DAY 8
     Route: 042
     Dates: start: 20141104

REACTIONS (5)
  - Wound dehiscence [Recovered/Resolved]
  - Rash maculo-papular [Unknown]
  - Seizure [Unknown]
  - Cerebrospinal fluid leakage [Unknown]
  - Wound infection [Recovered/Resolved]

NARRATIVE: CASE EVENT DATE: 20150316
